FAERS Safety Report 8537532-0 (Version None)
Quarter: 2012Q3

REPORT INFORMATION
  Report Type: 
  Country: None (occurrence: None)
  Receive Date: 20120725
  Receipt Date: 20120123
  Transmission Date: 20120928
  Serious: Yes (Hospitalization)
  Sender: FDA-Public Use
  Company Number: IE-BAXTER-2012BAX011182

PATIENT
  Sex: Female

DRUGS (2)
  1. SODIUM CHLORIDE 0.9% [Suspect]
     Route: 065
  2. CIPROFLOXACIN [Suspect]
     Route: 065

REACTIONS (4)
  - DEVICE BREAKAGE [None]
  - INJECTION SITE THROMBOSIS [None]
  - LOCAL SWELLING [None]
  - OEDEMA PERIPHERAL [None]
